FAERS Safety Report 6505230-0 (Version None)
Quarter: 2009Q4

REPORT INFORMATION
  Report Type: 
  Country: None (occurrence: None)
  Receive Date: 20091218
  Receipt Date: 20091210
  Transmission Date: 20100525
  Serious: Yes (Other)
  Sender: FDA-Public Use
  Company Number: DE-JNJFOC-20091203776

PATIENT
  Sex: Male
  Weight: 40.95 kg

DRUGS (3)
  1. CONCERTA [Suspect]
     Indication: ATTENTION DEFICIT/HYPERACTIVITY DISORDER
     Route: 048
  2. MEDIKINET [Suspect]
     Indication: ATTENTION DEFICIT/HYPERACTIVITY DISORDER
     Route: 048
     Dates: start: 20040101, end: 20091122
  3. CETIRIZIN [Concomitant]
     Route: 065

REACTIONS (6)
  - HAEMOGLOBIN ABNORMAL [None]
  - HEPATOMEGALY [None]
  - RED BLOOD CELL ABNORMALITY [None]
  - SPLENOMEGALY [None]
  - THROMBOCYTOPENIA [None]
  - WHITE BLOOD CELL DISORDER [None]
